FAERS Safety Report 5305807-4 (Version None)
Quarter: 2007Q2

REPORT INFORMATION
  Report Type: 
  Country: None (occurrence: None)
  Receive Date: 20070424
  Receipt Date: 20070411
  Transmission Date: 20071010
  Serious: Yes (Hospitalization, Other)
  Sender: FDA-Public Use
  Company Number: US-ELI_LILLY_AND_COMPANY-US200702005250

PATIENT
  Sex: Female

DRUGS (5)
  1. FORTEO [Suspect]
     Indication: OSTEOPOROSIS
     Dosage: 20 UG, DAILY (1/D)
     Route: 058
     Dates: start: 20060201, end: 20070201
  2. FORTEO [Suspect]
     Dosage: 20 UG, DAILY (1/D)
     Dates: start: 20070327
  3. METHOTREXATE [Concomitant]
     Indication: ARTHRALGIA
     Dates: start: 20060101
  4. COUMADIN [Concomitant]
  5. PREDNISONE TAB [Concomitant]

REACTIONS (7)
  - BLISTER [None]
  - DEHYDRATION [None]
  - DYSPHAGIA [None]
  - ERYTHEMA [None]
  - LABORATORY TEST ABNORMAL [None]
  - RENAL FAILURE [None]
  - THROMBOSIS [None]
